FAERS Safety Report 8219962-X (Version None)
Quarter: 2012Q1

REPORT INFORMATION
  Report Type: 
  Country: None (occurrence: None)
  Receive Date: 20120319
  Receipt Date: 20120308
  Transmission Date: 20120608
  Serious: Yes (Other)
  Sender: FDA-Public Use
  Company Number: US-ROCHE-794248

PATIENT
  Sex: Male

DRUGS (1)
  1. ACCUTANE [Suspect]
     Indication: ACNE
     Route: 065
     Dates: start: 19890201, end: 19890401

REACTIONS (5)
  - IRRITABLE BOWEL SYNDROME [None]
  - PANIC ATTACK [None]
  - INFLAMMATORY BOWEL DISEASE [None]
  - INSOMNIA [None]
  - ANXIETY [None]
